FAERS Safety Report 6282101-9 (Version None)
Quarter: 2009Q3

REPORT INFORMATION
  Report Type: 
  Country: None (occurrence: None)
  Receive Date: 20090724
  Receipt Date: 20090713
  Transmission Date: 20100115
  Serious: Yes (Other)
  Sender: FDA-Public Use
  Company Number: US-JNJFOC-20090600642

PATIENT
  Sex: Female
  Weight: 85.73 kg

DRUGS (11)
  1. REMICADE [Suspect]
     Dosage: RECEIVED ONLY 50 MG BEFORE INFUSION STOPPED
     Route: 042
  2. REMICADE [Suspect]
     Route: 042
  3. REMICADE [Suspect]
     Indication: RHEUMATOID ARTHRITIS
     Route: 042
  4. SULFASALAZINE [Concomitant]
     Route: 048
  5. NAPROXEN [Concomitant]
     Route: 048
  6. METHOTREXATE [Concomitant]
     Indication: RHEUMATOID ARTHRITIS
     Route: 048
  7. RESTASIS [Concomitant]
     Route: 047
  8. FOLIC ACID [Concomitant]
     Route: 048
  9. SIMVASTATIN [Concomitant]
     Route: 048
  10. EVISTA [Concomitant]
     Route: 048
  11. MOEXIPRIL HYDROCHLORIDE [Concomitant]

REACTIONS (5)
  - DYSPHONIA [None]
  - HYPERSENSITIVITY [None]
  - INFUSION RELATED REACTION [None]
  - NAUSEA [None]
  - RENAL CANCER [None]
